FAERS Safety Report 20942283 (Version 1)
Quarter: 2022Q2

REPORT INFORMATION
  Report Type: Report from Study
  Country: US (occurrence: US)
  Receive Date: 20220610
  Receipt Date: 20220610
  Transmission Date: 20220721
  Serious: Yes (Other)
  Sender: FDA-Public Use
  Company Number: US-CELGENE-USA-20220206549

PATIENT
  Age: 63 Year
  Sex: Female
  Weight: 69.4 kg

DRUGS (4)
  1. REVLIMID [Suspect]
     Active Substance: LENALIDOMIDE
     Indication: Myelodysplastic syndrome
     Dosage: 10 MILLIGRAM
     Route: 048
     Dates: start: 20220221
  2. REVLIMID [Suspect]
     Active Substance: LENALIDOMIDE
     Indication: Osteoarthritis
  3. REVLIMID [Suspect]
     Active Substance: LENALIDOMIDE
     Indication: Osteoarthritis
  4. REVLIMID [Suspect]
     Active Substance: LENALIDOMIDE
     Indication: Myelofibrosis

REACTIONS (6)
  - Tonsillar hypertrophy [Recovered/Resolved]
  - Pharyngitis streptococcal [Unknown]
  - Pruritus [Unknown]
  - Lymphadenopathy [Unknown]
  - Dysphagia [Unknown]
  - Off label use [Unknown]

NARRATIVE: CASE EVENT DATE: 20220427
